FAERS Safety Report 25685568 (Version 3)
Quarter: 2025Q3

REPORT INFORMATION
  Report Type: Spontaneous
  Country: EU (occurrence: EU)
  Receive Date: 20250815
  Receipt Date: 20250827
  Transmission Date: 20251021
  Serious: Yes (Other)
  Sender: PFIZER
  Company Number: EU-MLMSERVICE-20250804-PI603434-00140-1

PATIENT
  Age: 45 Year
  Sex: Female

DRUGS (11)
  1. DOXORUBICIN HYDROCHLORIDE [Suspect]
     Active Substance: DOXORUBICIN HYDROCHLORIDE
     Indication: Adrenocortical carcinoma
  2. DOXORUBICIN HYDROCHLORIDE [Suspect]
     Active Substance: DOXORUBICIN HYDROCHLORIDE
     Indication: Metastases to lung
  3. CISPLATIN [Suspect]
     Active Substance: CISPLATIN
     Indication: Adrenocortical carcinoma
  4. CISPLATIN [Suspect]
     Active Substance: CISPLATIN
     Indication: Metastases to lung
  5. ETOPOSIDE [Suspect]
     Active Substance: ETOPOSIDE
     Indication: Adrenocortical carcinoma
  6. ETOPOSIDE [Suspect]
     Active Substance: ETOPOSIDE
     Indication: Metastases to lung
  7. MITOTANE [Suspect]
     Active Substance: MITOTANE
     Indication: Adrenocortical carcinoma
     Dosage: 1.5 G, 1X/DAY
  8. MITOTANE [Suspect]
     Active Substance: MITOTANE
     Indication: Metastases to lung
     Dosage: 4 G, 1X/DAY
  9. CORTISONE ACETATE [Concomitant]
     Active Substance: CORTISONE ACETATE
     Indication: Adrenocortical carcinoma
     Dosage: 62.5 MG, 1X/DAY
  10. HEPARIN [Concomitant]
     Active Substance: HEPARIN SODIUM
     Indication: Pulmonary embolism
  11. METYRAPONE [Concomitant]
     Active Substance: METYRAPONE
     Indication: Adrenocortical carcinoma

REACTIONS (2)
  - Acute kidney injury [Recovering/Resolving]
  - Off label use [Unknown]
